FAERS Safety Report 12964712 (Version 4)
Quarter: 2017Q1

REPORT INFORMATION
  Report Type: Spontaneous
  Country: US (occurrence: US)
  Receive Date: 20161122
  Receipt Date: 20170113
  Transmission Date: 20170428
  Serious: Yes (Hospitalization)
  Sender: FDA-Public Use
  Company Number: US-PFIZER INC-2016521460

PATIENT
  Age: 76 Year
  Sex: Female

DRUGS (12)
  1. IBUPROFEN. [Concomitant]
     Active Substance: IBUPROFEN
     Indication: PAIN
     Dosage: 600 MG, AS NEEDED (TAKE 1 TABLET THREE TIMES DAILY)
     Route: 048
  2. LOSARTAN POTASSIUM AND HYDROCHLOROTHIAZIDE [Concomitant]
     Active Substance: HYDROCHLOROTHIAZIDE\LOSARTAN POTASSIUM
     Indication: BLOOD PRESSURE ABNORMAL
     Dosage: 1 DF, 1X/DAY (LOSARTAN 100 MG/ HYDROCHLOROTHIAZIDE 25 MG) (TAKE 1 TABLET ONCE A DAY AS DIRECTED)
     Route: 048
  3. ALENDRONATE [Concomitant]
     Active Substance: ALENDRONATE SODIUM
     Indication: OSTEOPOROSIS
     Dosage: 70 MG, WEEKLY (ONCE A WEEK AS DIRECTED)
     Route: 048
  4. METFORMIN [Concomitant]
     Active Substance: METFORMIN HYDROCHLORIDE
     Indication: DIABETES MELLITUS
     Dosage: 1000 MG, 2X/DAY (AS DIRECTED)
     Route: 048
  5. TRIXAICIN HP [Concomitant]
     Active Substance: CAPSICUM OLEORESIN
     Indication: PAIN
     Dosage: UNK UNK, AS NEEDED (APPLY 1 A SMALL AMOUNT TO AFFECTED AREA THREE TIMES A DAY AS NEEDED)
  6. LYRICA [Suspect]
     Active Substance: PREGABALIN
     Indication: NEURALGIA
     Dosage: 75 MG, 3X/DAY
     Route: 048
  7. HYDROCODONE-ACETAMINOPHEN [Concomitant]
     Active Substance: ACETAMINOPHEN\HYDROCODONE
     Indication: PAIN
     Dosage: 1 DF, AS NEEDED (HYDROCODONE 10 MG/ ACETAMINOPHEN 325 MG) (1 TABLET EVERY SIX TO EIGHT HOURS)
     Route: 048
  8. AMLODIPINE [Concomitant]
     Active Substance: AMLODIPINE BESYLATE
     Indication: BLOOD PRESSURE ABNORMAL
     Dosage: 10 MG, 1X/DAY
     Route: 048
  9. BUTALBITAL, ACETAMINOPHEN, AND CAFFEINE [Concomitant]
     Active Substance: ACETAMINOPHEN\BUTALBITAL\CAFFEINE
     Indication: HEADACHE
     Dosage: 2 DF, AS NEEDED (BUTALBITAL 50 MG/ACETAMINOPHEN 325 MG/CAFFEINE 40 MG, 2 TABLET ONCE DAY AS NEEDED)
     Route: 048
  10. LOSARTAN POTASSIUM AND HYDROCHLOROTHIAZIDE [Concomitant]
     Active Substance: HYDROCHLOROTHIAZIDE\LOSARTAN POTASSIUM
     Indication: RENAL DISORDER
  11. TRIXAICIN HP [Concomitant]
     Active Substance: CAPSICUM OLEORESIN
     Indication: OSTEOARTHRITIS
  12. ATORVASTATIN [Concomitant]
     Active Substance: ATORVASTATIN
     Indication: BLOOD CHOLESTEROL ABNORMAL
     Dosage: 40 MG, 1X/DAY (AT BEDTIME )
     Route: 048

REACTIONS (1)
  - Foot fracture [Not Recovered/Not Resolved]
